FAERS Safety Report 12370459 (Version 4)
Quarter: 2016Q4

REPORT INFORMATION
  Report Type: Report from Study
  Country: ES (occurrence: ES)
  Receive Date: 20160516
  Receipt Date: 20161026
  Transmission Date: 20170207
  Serious: Yes (Hospitalization, Other)
  Sender: FDA-Public Use
  Company Number: ES-BRISTOL-MYERS SQUIBB COMPANY-BMS-2016-037238

PATIENT
  Age: 72 Year
  Sex: Male
  Weight: 92 kg

DRUGS (11)
  1. NIVOLUMAB [Suspect]
     Active Substance: NIVOLUMAB
     Indication: PRODUCT USED FOR UNKNOWN INDICATION
     Dosage: 276 MG, UNK
     Route: 065
     Dates: start: 20151230, end: 20151230
  2. NIVOLUMAB [Suspect]
     Active Substance: NIVOLUMAB
     Indication: PRODUCT USED FOR UNKNOWN INDICATION
     Dosage: 276 MG, UNK
     Route: 065
     Dates: start: 20160226, end: 20160226
  3. NIVOLUMAB [Suspect]
     Active Substance: NIVOLUMAB
     Indication: NON-SMALL CELL LUNG CANCER
     Dosage: 276 MG, TOTAL
     Route: 065
     Dates: start: 20151203, end: 20151203
  4. NIVOLUMAB [Suspect]
     Active Substance: NIVOLUMAB
     Indication: PRODUCT USED FOR UNKNOWN INDICATION
     Dosage: 276 MG, UNK
     Route: 065
     Dates: start: 20160114, end: 20160114
  5. NIVOLUMAB [Suspect]
     Active Substance: NIVOLUMAB
     Indication: PRODUCT USED FOR UNKNOWN INDICATION
     Dosage: 276 MG, UNK
     Route: 065
     Dates: start: 20160329, end: 20160329
  6. NIVOLUMAB [Suspect]
     Active Substance: NIVOLUMAB
     Indication: PRODUCT USED FOR UNKNOWN INDICATION
     Dosage: 276 MG, UNK
     Route: 065
     Dates: start: 20160129, end: 20160129
  7. NIVOLUMAB [Suspect]
     Active Substance: NIVOLUMAB
     Indication: PRODUCT USED FOR UNKNOWN INDICATION
     Dosage: 276 MG, UNK
     Route: 065
     Dates: start: 20160311, end: 20160311
  8. NIVOLUMAB [Suspect]
     Active Substance: NIVOLUMAB
     Indication: PRODUCT USED FOR UNKNOWN INDICATION
     Dosage: 276 MG, UNK
     Route: 065
     Dates: start: 20160411, end: 20160411
  9. NIVOLUMAB [Suspect]
     Active Substance: NIVOLUMAB
     Indication: PRODUCT USED FOR UNKNOWN INDICATION
     Dosage: 276 MG, UNK
     Route: 065
     Dates: start: 20160425, end: 20160425
  10. NIVOLUMAB [Suspect]
     Active Substance: NIVOLUMAB
     Indication: PRODUCT USED FOR UNKNOWN INDICATION
     Dosage: 276 MG, TOTAL
     Route: 065
     Dates: start: 20151217, end: 20151217
  11. NIVOLUMAB [Suspect]
     Active Substance: NIVOLUMAB
     Indication: PRODUCT USED FOR UNKNOWN INDICATION
     Dosage: 276 MG, UNK
     Route: 065
     Dates: start: 20160212, end: 20160212

REACTIONS (2)
  - Diarrhoea [Unknown]
  - Renal failure [Recovered/Resolved]

NARRATIVE: CASE EVENT DATE: 20160509
